FAERS Safety Report 6568871-0 (Version None)
Quarter: 2009Q4

REPORT INFORMATION
  Report Type: 
  Country: None (occurrence: None)
  Receive Date: 20091222
  Receipt Date: 20091222
  Transmission Date: 20100525
  Serious: No
  Sender: FDA-Public Use
  Company Number: None

PATIENT
  Age: 67 Year
  Sex: Female
  Weight: 45.8133 kg

DRUGS (1)
  1. BARIUM SULFATE SUSPENSION 450 ML EZ-EM INC C BRACCO DIAGNOSTICS [Suspect]
     Indication: COMPUTERISED TOMOGRAM
     Dosage: BARIUM SULFATE SUSPENSION 450 ML 3 DOSES ORAL 047
     Route: 048
     Dates: start: 20091122, end: 20091123

REACTIONS (2)
  - ABDOMINAL PAIN UPPER [None]
  - PYREXIA [None]
